FAERS Safety Report 5902571-2 (Version None)
Quarter: 2008Q3

REPORT INFORMATION
  Report Type: 
  Country: None (occurrence: None)
  Receive Date: 20080925
  Receipt Date: 20080919
  Transmission Date: 20090109
  Serious: Yes (Hospitalization)
  Sender: FDA-Public Use
  Company Number: 034093

PATIENT
  Age: 73 Year
  Sex: Female

DRUGS (14)
  1. WARFARIN SODIUM [Suspect]
  2. RANIBIZUMAB(RANIBIZUMAB) [Suspect]
  3. AMOXICILLIN [Concomitant]
  4. METFORMIN HCL [Concomitant]
  5. CEFTRIAXONE SODIUM (CEFTRIAXONE SODIUM) [Concomitant]
  6. AZITHROMYCIN [Concomitant]
  7. ASPIRIN [Concomitant]
  8. METOPROLOL TARTRATE [Concomitant]
  9. HEPARIN SODIUM [Concomitant]
  10. DILTIAZEM HYDROCHLORIDE [Concomitant]
  11. FAMOTIDINE [Concomitant]
  12. LORAZEPAM [Concomitant]
  13. PEPCID [Concomitant]
  14. ATIVAN [Concomitant]

REACTIONS (9)
  - ANION GAP DECREASED [None]
  - BACTERIA URINE [None]
  - ECCHYMOSIS [None]
  - HAEMATURIA [None]
  - HAEMOGLOBIN DECREASED [None]
  - HEPATIC CALCIFICATION [None]
  - HEPATIC MASS [None]
  - PROTEIN URINE PRESENT [None]
  - URINE BILIRUBIN INCREASED [None]
